FAERS Safety Report 5926709-6 (Version None)
Quarter: 2008Q4

REPORT INFORMATION
  Report Type: 
  Country: None (occurrence: None)
  Receive Date: 20081022
  Receipt Date: 20081014
  Transmission Date: 20090506
  Serious: Yes (Other)
  Sender: FDA-Public Use
  Company Number: ZA-AVENTIS-200819712GDDC

PATIENT
  Age: 44 Year
  Sex: Male

DRUGS (4)
  1. TAXOTERE [Suspect]
     Route: 042
     Dates: start: 20080816, end: 20080926
  2. BETANOID [Concomitant]
     Indication: PREMEDICATION
     Route: 048
     Dates: start: 20080814, end: 20080927
  3. KYTRIL                             /01178101/ [Concomitant]
     Indication: PROPHYLAXIS
     Route: 042
     Dates: start: 20080815, end: 20080926
  4. KYTRIL                             /01178101/ [Concomitant]
     Route: 048
     Dates: start: 20080815, end: 20080926

REACTIONS (4)
  - CELLULITIS [None]
  - EYE PAIN [None]
  - EYE SWELLING [None]
  - PAPILLOEDEMA [None]
